FAERS Safety Report 7617109-1 (Version None)
Quarter: 2011Q3

REPORT INFORMATION
  Report Type: 
  Country: None (occurrence: None)
  Receive Date: 20110718
  Receipt Date: 20110706
  Transmission Date: 20111222
  Serious: Yes (Other)
  Sender: FDA-Public Use
  Company Number: US-BAYER-200934368NA

PATIENT
  Age: 73 Year
  Sex: Male
  Weight: 90 kg

DRUGS (15)
  1. VECURONIUM BROMIDE [Concomitant]
     Dosage: UNK
     Route: 042
     Dates: start: 20050407, end: 20050407
  2. INSULIN [Concomitant]
  3. PAPAVERINE [Concomitant]
     Dosage: UNK
     Route: 042
     Dates: start: 20050407, end: 20050407
  4. DOBUTREX [Concomitant]
     Dosage: UNK
     Route: 042
     Dates: start: 20050407, end: 20050407
  5. LISINOPRIL [Concomitant]
  6. TRASYLOL [Suspect]
     Dosage: 200 ML OF LOADING DOSE
     Route: 042
     Dates: start: 20050407, end: 20050407
  7. VERSED [Concomitant]
     Dosage: UNK
     Route: 042
     Dates: start: 20050407, end: 20050407
  8. PROTAMINE SULFATE [Concomitant]
     Dosage: UNK
     Route: 042
     Dates: start: 20050407, end: 20050407
  9. TRASYLOL [Suspect]
     Dosage: 50ML/HR INFUSION
     Route: 042
     Dates: start: 20050407, end: 20050407
  10. ZOCOR [Concomitant]
  11. ACETYLSALICYLIC ACID SRT [Concomitant]
  12. DIPRIVAN [Concomitant]
     Dosage: UNK
     Route: 042
     Dates: start: 20050407, end: 20050407
  13. PHENYLEPHRINE HCL [Concomitant]
     Dosage: UNK
     Route: 042
     Dates: start: 20050407, end: 20050407
  14. FENTANYL-100 [Concomitant]
     Dosage: UNK
     Route: 042
     Dates: start: 20050407, end: 20050407
  15. TRASYLOL [Suspect]
     Indication: PRODUCT USED FOR UNKNOWN INDICATION
     Dosage: 200 ML PUMP PRIME
     Route: 042
     Dates: start: 20050407, end: 20050407

REACTIONS (12)
  - UNEVALUABLE EVENT [None]
  - ANAEMIA [None]
  - RENAL IMPAIRMENT [None]
  - INJURY [None]
  - RENAL INJURY [None]
  - ANXIETY [None]
  - PAIN [None]
  - CARDIAC DISORDER [None]
  - EMOTIONAL DISTRESS [None]
  - STRESS [None]
  - RENAL FAILURE [None]
  - FEAR [None]
